FAERS Safety Report 4534491-2 (Version None)
Quarter: 2004Q4

REPORT INFORMATION
  Report Type: 
  Country: None (occurrence: None)
  Receive Date: 20041222
  Receipt Date: 20041102
  Transmission Date: 20050328
  Serious: Yes (Other)
  Sender: FDA-Public Use
  Company Number: GBWYE167102NOV04

PATIENT
  Sex: Female

DRUGS (5)
  1. ENBREL [Suspect]
     Indication: RHEUMATOID ARTHRITIS
     Route: 058
     Dates: start: 20040401
  2. LEVOTHYROXINE SODIUM [Concomitant]
     Dates: start: 19930101
  3. DICLOFENAC [Concomitant]
     Dates: start: 19930101
  4. OMEPRAZOLE [Concomitant]
     Dates: start: 19970101
  5. METHOTREXATE [Concomitant]
     Dates: start: 19970101

REACTIONS (1)
  - FACIAL PALSY [None]
